FAERS Safety Report 8576566-7 (Version None)
Quarter: 2012Q3

REPORT INFORMATION
  Report Type: 
  Country: None (occurrence: None)
  Receive Date: 20120807
  Receipt Date: 20120723
  Transmission Date: 20120928
  Serious: Yes (Death, Other)
  Sender: FDA-Public Use
  Company Number: DE-ROCHE-668865

PATIENT

DRUGS (7)
  1. TACROLIMUS [Suspect]
     Indication: IMMUNOSUPPRESSION
     Dosage: ROUTE: INTRAVENOUS: 0.01-0.03 MG/KG DAILY; ORAL: 0.05-0.3 MG/KG DAILY
     Route: 050
  2. PREDNISOLONE [Suspect]
     Indication: IMMUNOSUPPRESSION
     Dosage: 0.5-1 MG/KG PER DAY
     Route: 048
  3. PREDNISOLONE [Suspect]
     Dosage: THEN TAPERED TO 0.1 TO 0.2 MG/KG/DAY WITHIN THE FIRST 3 MONTHS
  4. CELLCEPT [Suspect]
     Dosage: 2-3 G
     Route: 048
  5. METHYLPREDNISOLONE [Suspect]
     Dosage: 3 DOSES
  6. CELLCEPT [Suspect]
     Indication: PROPHYLAXIS AGAINST TRANSPLANT REJECTION
     Dosage: ROUTE: NASOGASTRIC ALSO
     Route: 042
  7. METHYLPREDNISOLONE [Suspect]
     Indication: IMMUNOSUPPRESSION
     Dosage: 500 MG TO 1 GRAM
     Route: 042

REACTIONS (8)
  - FUNGAL INFECTION [None]
  - OBLITERATIVE BRONCHIOLITIS [None]
  - BACTERIAL INFECTION [None]
  - NEUROTOXICITY [None]
  - TRANSPLANT REJECTION [None]
  - VIRAL INFECTION [None]
  - PANCYTOPENIA [None]
  - RENAL FAILURE [None]
